FAERS Safety Report 24242510 (Version 1)
Quarter: 2024Q3

REPORT INFORMATION
  Report Type: Spontaneous
  Country: GB (occurrence: GB)
  Receive Date: 20240823
  Receipt Date: 20240823
  Transmission Date: 20241017
  Serious: Yes (Other)
  Sender: TORRENT
  Company Number: None

PATIENT
  Age: 81 Year
  Sex: Male
  Weight: 82 kg

DRUGS (17)
  1. CLOPIDOGREL [Suspect]
     Active Substance: CLOPIDOGREL BISULFATE
     Indication: Ill-defined disorder
     Dosage: UNKNOWN
     Route: 048
     Dates: start: 20240101, end: 20240701
  2. Adcal [Concomitant]
     Indication: Ill-defined disorder
     Dosage: TAKE ONE TWICE DAILY
     Route: 065
     Dates: start: 20240712, end: 20240809
  3. AMLODIPINE [Concomitant]
     Active Substance: AMLODIPINE BESYLATE
     Indication: Ill-defined disorder
     Dosage: ONE TO BE TAKEN EACH DAY
     Route: 065
     Dates: start: 20231229
  4. ASPIRIN [Concomitant]
     Active Substance: ASPIRIN
     Indication: Ill-defined disorder
     Dosage: 1 TO BE TAKEN EACH MORNING
     Route: 065
     Dates: start: 20240813
  5. BUPRENORPHINE [Concomitant]
     Active Substance: BUPRENORPHINE
     Indication: Ill-defined disorder
     Dosage: APPLY ONE PATCH EACH WEEK AS DIRECTED. REMOVE O...
     Route: 065
     Dates: start: 20231229, end: 20240813
  6. CANDESARTAN [Concomitant]
     Active Substance: CANDESARTAN
     Indication: Ill-defined disorder
     Dosage: ONE TO BE TAKEN DAILY
     Route: 065
     Dates: start: 20231229
  7. CLOPIDOGREL [Concomitant]
     Active Substance: CLOPIDOGREL BISULFATE
     Indication: Ill-defined disorder
     Dosage: ONE TO BE TAKEN EACH DAY
     Route: 065
     Dates: start: 20231229, end: 20240813
  8. DOXAZOSIN [Concomitant]
     Active Substance: DOXAZOSIN MESYLATE
     Indication: Ill-defined disorder
     Dosage: ONE TO BE TAKEN EACH DAY
     Route: 065
     Dates: start: 20231229
  9. FERROUS FUMARATE [Concomitant]
     Active Substance: FERROUS FUMARATE
     Indication: Ill-defined disorder
     Dosage: ONE TWICE  A DAY
     Route: 065
     Dates: start: 20240717
  10. FINASTERIDE [Concomitant]
     Active Substance: FINASTERIDE
     Indication: Ill-defined disorder
     Dosage: ONE TO BE TAKEN EACH DAY
     Route: 065
     Dates: start: 20231229
  11. FYBOGEL [Concomitant]
     Active Substance: HERBALS\PLANTAGO OVATA SEED
     Indication: Ill-defined disorder
     Dosage: ONCE A DAY
     Route: 065
     Dates: start: 20240725
  12. LANSOPRAZOLE [Concomitant]
     Active Substance: LANSOPRAZOLE
     Indication: Ill-defined disorder
     Dosage: ONE TO BE TAKEN EACH MORNING (THIS REPLACES OME...
     Route: 065
     Dates: start: 20231229, end: 20240813
  13. LEVETIRACETAM [Concomitant]
     Active Substance: LEVETIRACETAM
     Indication: Ill-defined disorder
     Dosage: TWO TO BE TAKEN TWICE A DAY
     Route: 065
     Dates: start: 20231229
  14. LIPITOR [Concomitant]
     Active Substance: ATORVASTATIN CALCIUM
     Indication: Ill-defined disorder
     Dosage: TAKE ONE TABLET EACH DAY - THIS IS A BRAND OF A...
     Route: 065
     Dates: start: 20231229
  15. CALCIUM CARBONATE\CHOLECALCIFEROL [Concomitant]
     Active Substance: CALCIUM CARBONATE\CHOLECALCIFEROL
     Indication: Ill-defined disorder
     Dosage: TAKE ONE TWICE A DAY
     Route: 065
     Dates: start: 20231229
  16. OMEPRAZOLE [Concomitant]
     Active Substance: OMEPRAZOLE
     Indication: Ill-defined disorder
     Dosage: TAKE ONE CAPSULE EACH DAY, TAKE 2 HOURS AWAY FR...
     Route: 065
     Dates: start: 20240813
  17. ACETAMINOPHEN [Concomitant]
     Active Substance: ACETAMINOPHEN
     Indication: Ill-defined disorder
     Dosage: TWO TO BE TAKEN EVERY 4-6 HOURS UP TO FOUR TIME...
     Route: 065
     Dates: start: 20231229

REACTIONS (2)
  - Iron deficiency anaemia [Not Recovered/Not Resolved]
  - Rectal haemorrhage [Unknown]

NARRATIVE: CASE EVENT DATE: 20240101
